FAERS Safety Report 24611597 (Version 1)
Quarter: 2024Q4

REPORT INFORMATION
  Report Type: Spontaneous
  Country: CN (occurrence: CN)
  Receive Date: 20241113
  Receipt Date: 20241113
  Transmission Date: 20250114
  Serious: Yes (Other)
  Sender: RANBAXY
  Company Number: CN-SUN PHARMACEUTICAL INDUSTRIES LTD-2024R1-478412

PATIENT
  Age: 81 Year
  Sex: Male

DRUGS (6)
  1. CAPECITABINE [Suspect]
     Active Substance: CAPECITABINE
     Indication: Sweat gland tumour
     Dosage: 2 TABLETS TWICE DAILY ON DAYS 1-14, Q3W
     Route: 065
  2. CAPECITABINE [Suspect]
     Active Substance: CAPECITABINE
     Indication: Metastases to liver
  3. RIVOCERANIB [Suspect]
     Active Substance: RIVOCERANIB
     Indication: Sweat gland tumour
     Dosage: 250 MILLIGRAM, DAILY
     Route: 065
  4. RIVOCERANIB [Suspect]
     Active Substance: RIVOCERANIB
     Indication: Metastases to liver
  5. VINORELBINE [Suspect]
     Active Substance: VINORELBINE TARTRATE
     Indication: Sweat gland tumour
     Dosage: 40 MILLIGRAM, THREE TIMES A WEEK
     Route: 065
     Dates: start: 20220228
  6. VINORELBINE [Suspect]
     Active Substance: VINORELBINE TARTRATE
     Indication: Metastases to liver

REACTIONS (1)
  - Disease progression [Not Recovered/Not Resolved]
